FAERS Safety Report 11319155 (Version 10)
Quarter: 2016Q3

REPORT INFORMATION
  Report Type: Spontaneous
  Country: US (occurrence: US)
  Receive Date: 20150729
  Receipt Date: 20160908
  Transmission Date: 20161109
  Serious: Yes (Death, Hospitalization)
  Sender: FDA-Public Use
  Company Number: US-ACTELION PHARMACEUTICALS US, INC.-A-US2015-112096

PATIENT
  Age: 83 Year
  Sex: Female

DRUGS (6)
  1. OXYGEN. [Concomitant]
     Active Substance: OXYGEN
  2. TREPROSTINIL DIOLAMIN [Suspect]
     Active Substance: TREPROSTINIL DIOLAMINE
     Indication: PRODUCT USED FOR UNKNOWN INDICATION
     Dosage: 2.375 MG, TID
     Route: 048
  3. OPSUMIT [Suspect]
     Active Substance: MACITENTAN
     Indication: PULMONARY HYPERTENSION
     Dosage: 10 MG, QD
     Route: 048
     Dates: start: 20141007, end: 20160728
  4. ASPIRIN. [Concomitant]
     Active Substance: ASPIRIN
  5. TYVASO [Concomitant]
     Active Substance: TREPROSTINIL
     Route: 055
  6. REVATIO [Concomitant]
     Active Substance: SILDENAFIL CITRATE
     Dosage: 80 MG, UNK

REACTIONS (19)
  - Vision blurred [Recovering/Resolving]
  - Headache [Unknown]
  - Weight increased [Unknown]
  - Dizziness [Unknown]
  - Secretion discharge [Unknown]
  - Nasal congestion [Unknown]
  - Dyspepsia [Recovered/Resolved]
  - Diarrhoea [Unknown]
  - Abdominal pain upper [Unknown]
  - Dyspnoea exertional [Unknown]
  - Malaise [Unknown]
  - Pulmonary arterial hypertension [Unknown]
  - Dyspnoea [Unknown]
  - Muscular weakness [Unknown]
  - Asthenia [Unknown]
  - Death [Fatal]
  - Flatulence [Unknown]
  - Gastroenteritis viral [Recovered/Resolved]
  - Nausea [Unknown]

NARRATIVE: CASE EVENT DATE: 20160728
